FAERS Safety Report 7609018-9 (Version None)
Quarter: 2011Q3

REPORT INFORMATION
  Report Type: 
  Country: None (occurrence: None)
  Receive Date: 20110714
  Receipt Date: 20110706
  Transmission Date: 20111222
  Serious: Yes (Life-Threatening, Hospitalization, Disabling)
  Sender: FDA-Public Use
  Company Number: DE-ROCHE-677914

PATIENT
  Sex: Male
  Weight: 68 kg

DRUGS (22)
  1. ACETAMINOPHEN [Concomitant]
     Indication: PREMEDICATION
     Dosage: ALSO GIVEN ON 07 SEP 2009 AS PREMEDICATION PRIOR TO RITUXIMATB INFUSION.
     Route: 048
     Dates: start: 20090824
  2. ALLOPURINOL [Concomitant]
     Dosage: 2-0-0
  3. OXYGESIC [Concomitant]
     Dosage: 1-1-1
  4. PANTOPRAZOLE [Concomitant]
     Dosage: 1-0-0
  5. CARBAMAZEPINE [Concomitant]
     Dosage: 1-0-1
  6. PREDNISOLONE [Suspect]
     Route: 048
     Dates: start: 20101201, end: 20101221
  7. IBUPROFEN [Concomitant]
     Dosage: 1-1-1
  8. OMEPRAZOLE [Concomitant]
  9. RITUXIMAB [Suspect]
     Indication: RHEUMATOID ARTHRITIS
     Dosage: FURTHER ADMINISTRATIONS ON 29-MAY-2008, 13-JAN-2009, 24-AUG-2009 AND 7-SEP-2009
     Route: 042
     Dates: start: 20070612, end: 20091201
  10. PREDNISOLONE [Suspect]
     Route: 048
     Dates: start: 20101222
  11. FENISTIL [Concomitant]
     Indication: PREMEDICATION
     Dosage: ALSO GIVEN ON 07 SEP 2009 AS PREMEDICATION PRIOR TO RITUXIMATB INFUSION.
     Route: 042
     Dates: start: 20090824
  12. METOPROLOL SUCCINATE [Concomitant]
     Dosage: 1-0-0
     Route: 048
     Dates: start: 20060101
  13. TOCILIZUMAB [Suspect]
     Indication: RHEUMATOID ARTHRITIS
     Dosage: APPLICATION ON 19 MAY, 16 JUN, 13 JUL AND 6 AUG 2009
     Route: 042
     Dates: start: 20090505, end: 20090806
  14. METHYLPREDNISOLONE [Suspect]
     Indication: RHEUMATOID ARTHRITIS
     Route: 042
     Dates: start: 20090824, end: 20090907
  15. FRAXIPARIN [Concomitant]
     Dosage: 1-0-1
     Route: 058
  16. PREDNISOLONE [Suspect]
     Indication: RHEUMATOID ARTHRITIS
     Dosage: 1-0-0
     Route: 048
     Dates: start: 20070707, end: 20101201
  17. RAMIPRIL PLUS [Concomitant]
     Dosage: 1-0-0
     Route: 048
     Dates: start: 20060101
  18. COLCHICUM [Concomitant]
     Dosage: 1-1-1
  19. VOLTAREN [Concomitant]
     Dosage: EQUIVALENT TO 150 MG DICLOFENAC PER DAY
  20. PREDNISOLONE [Suspect]
     Route: 048
  21. FALITHROM [Concomitant]
     Dosage: PAUSED AT THE MOMENT
  22. TORSEMIDE [Concomitant]
     Dosage: 1-0-0

REACTIONS (9)
  - URINARY TRACT INFECTION [None]
  - OSTEOMYELITIS [None]
  - PROSTATE INFECTION [None]
  - DEHYDRATION [None]
  - INCONTINENCE [None]
  - HYDRONEPHROSIS [None]
  - INFECTED SKIN ULCER [None]
  - RENAL FAILURE ACUTE [None]
  - URETERIC STENOSIS [None]
